FAERS Safety Report 8199270-6 (Version None)
Quarter: 2012Q1

REPORT INFORMATION
  Report Type: 
  Country: None (occurrence: None)
  Receive Date: 20120309
  Receipt Date: 20120306
  Transmission Date: 20120608
  Serious: Yes (Other)
  Sender: FDA-Public Use
  Company Number: GB-PFIZER INC-2012060451

PATIENT
  Age: 75 Year
  Sex: Male

DRUGS (10)
  1. PREDNISOLONE [Suspect]
     Dosage: UNK
  2. VERAPAMIL [Suspect]
     Dosage: UNK
  3. ATORVASTATIN CALCIUM [Suspect]
     Dosage: UNK
  4. METFORMIN HCL [Suspect]
     Dosage: UNK
  5. WARFARIN SODIUM [Suspect]
     Dosage: UNK
  6. CYSTEINE HYDROCHLORIDE [Suspect]
     Dosage: UNK
  7. ALBUTEROL [Suspect]
     Dosage: UNK
  8. FUROSEMIDE [Suspect]
     Dosage: UNK
  9. FORMOTEROL [Suspect]
     Dosage: UNK
  10. RAMIPRIL [Suspect]
     Dosage: UNK

REACTIONS (1)
  - HALLUCINATION [None]
